FAERS Safety Report 4609983-8 (Version None)
Quarter: 2005Q1

REPORT INFORMATION
  Report Type: 
  Country: None (occurrence: None)
  Receive Date: 20050315
  Receipt Date: 20050303
  Transmission Date: 20050727
  Serious: Yes (Life-Threatening, Hospitalization, Other)
  Sender: FDA-Public Use
  Company Number: HQWYE787603MAR05

PATIENT
  Age: 4 Year
  Sex: Male

DRUGS (3)
  1. CHILDREN'S ADVIL [Suspect]
     Indication: PYREXIA
     Dosage: 105 MG 4X PER 1 DAY
     Route: 048
     Dates: start: 20050120, end: 20050128
  2. CELESTENE (BETAMETHASONE, ) [Suspect]
     Indication: COUGH
     Dosage: 0.4 MG 1X PER 1 DAY
     Route: 048
     Dates: start: 20050122, end: 20050128
  3. CEFPODOXIME PROXETIL [Suspect]
     Indication: COUGH
     Dosage: 28 MG 2X PER 1 DAY
     Dates: start: 20050122, end: 20050128

REACTIONS (2)
  - PLEUROPERICARDITIS [None]
  - PNEUMOCOCCAL INFECTION [None]
